FAERS Safety Report 7826480-7 (Version None)
Quarter: 2011Q4

REPORT INFORMATION
  Report Type: 
  Country: None (occurrence: None)
  Receive Date: 20111006
  Receipt Date: 20110926
  Transmission Date: 20120403
  Serious: Yes (Other)
  Sender: FDA-Public Use
  Company Number: 2011029896

PATIENT
  Sex: Female

DRUGS (2)
  1. PRIVIGEN [Suspect]
     Indication: GUILLAIN-BARRE SYNDROME
     Dosage: (75 G 2X/2 WEEKS 1 GRAM/KILOGRAM INTRAVENOUS (NOT OTHERWISE SPECIFIED))
     Route: 042
  2. PRIVIGEN [Suspect]
     Indication: CHRONIC INFLAMMATORY DEMYELINATING POLYRADICULONEUROPATHY
     Dosage: (75 G 2X/2 WEEKS 1 GRAM/KILOGRAM INTRAVENOUS (NOT OTHERWISE SPECIFIED))
     Route: 042

REACTIONS (3)
  - DRUG INEFFECTIVE [None]
  - OFF LABEL USE [None]
  - MUSCULAR WEAKNESS [None]
